FAERS Safety Report 16436791 (Version 2)
Quarter: 2019Q3

REPORT INFORMATION
  Report Type: Spontaneous
  Country: US (occurrence: US)
  Receive Date: 20190614
  Receipt Date: 20190703
  Transmission Date: 20191004
  Serious: Yes (Other)
  Sender: FDA-Public Use
  Company Number: US-BIOVITRUM-2019US1430

PATIENT
  Age: 30 Year
  Sex: Female

DRUGS (4)
  1. GAMIFANT [Suspect]
     Active Substance: EMAPALUMAB-LZSG
     Route: 042
     Dates: end: 20190531
  2. GAMIFANT [Suspect]
     Active Substance: EMAPALUMAB-LZSG
     Route: 042
     Dates: start: 201905
  3. ETOPOSIDE. [Concomitant]
     Active Substance: ETOPOSIDE
  4. GAMIFANT [Suspect]
     Active Substance: EMAPALUMAB-LZSG
     Indication: HAEMOPHAGOCYTIC LYMPHOHISTIOCYTOSIS
     Route: 042
     Dates: start: 201902, end: 201905

REACTIONS (1)
  - Thrombocytopenia [Recovering/Resolving]

NARRATIVE: CASE EVENT DATE: 20190523
